FAERS Safety Report 8810078 (Version 1)
Quarter: 2012Q4

REPORT INFORMATION
  Report Type: 
  Country: US (occurrence: US)
  Receive Date: 20120926
  Receipt Date: 20120926
  Transmission Date: 20130627
  Serious: No
  Sender: FDA-Public Use
  Company Number: US-B.I. PHARMACEUTICALS,INC./RIDGEFIELD-2012-BP-22890BP

PATIENT
  Age: 76 Year
  Sex: Female

DRUGS (10)
  1. SPIRIVA [Suspect]
     Indication: EMPHYSEMA
     Dosage: 18 mcg
     Route: 055
     Dates: start: 201204
  2. SINGULAIR [Concomitant]
     Indication: ASTHMA
  3. SINGULAIR [Concomitant]
     Indication: EMPHYSEMA
  4. ADVAIR [Concomitant]
     Indication: ASTHMA
     Route: 055
  5. ADVAIR [Concomitant]
     Indication: EMPHYSEMA
  6. PROVENTIL [Concomitant]
     Indication: ASTHMA
     Route: 055
  7. MEDICATION NOT FURTHER SPECIFIED [Concomitant]
     Indication: HYPERTENSION
  8. MEDICATION NOT FURTHER SPECIFIED [Concomitant]
     Indication: BLOOD CHOLESTEROL INCREASED
  9. MEDICATION NOT FURTHER SPECIFIED [Concomitant]
     Indication: GASTRIC ULCER
  10. MEDICATION NOT FURTHER SPECIFIED [Concomitant]
     Indication: RHEUMATOID ARTHRITIS

REACTIONS (5)
  - Dyspnoea [Not Recovered/Not Resolved]
  - Dry mouth [Not Recovered/Not Resolved]
  - Cough [Not Recovered/Not Resolved]
  - Increased upper airway secretion [Not Recovered/Not Resolved]
  - Product quality issue [Unknown]
